FAERS Safety Report 19888631 (Version 1)
Quarter: 2021Q3

REPORT INFORMATION
  Report Type: Spontaneous
  Country: GB (occurrence: GB)
  Receive Date: 20210927
  Receipt Date: 20210927
  Transmission Date: 20211014
  Serious: Yes (Life-Threatening)
  Sender: FDA-Public Use
  Company Number: None

PATIENT

DRUGS (1)
  1. DESOGESTREL [Suspect]
     Active Substance: DESOGESTREL

REACTIONS (2)
  - Suicidal ideation [None]
  - Depression [None]
